FAERS Safety Report 25315802 (Version 2)
Quarter: 2025Q3

REPORT INFORMATION
  Report Type: Spontaneous
  Country: US (occurrence: US)
  Receive Date: 20250515
  Receipt Date: 20250729
  Transmission Date: 20251020
  Serious: Yes (Other)
  Sender: GLAXOSMITHKLINE
  Company Number: US-GSK-US2025AMR058841

PATIENT
  Sex: Female

DRUGS (1)
  1. ZEJULA [Suspect]
     Active Substance: NIRAPARIB
     Indication: Ovarian cancer
     Dosage: 200 MG, QD

REACTIONS (11)
  - Neuropathy peripheral [Unknown]
  - Arthropathy [Not Recovered/Not Resolved]
  - Sciatica [Unknown]
  - Muscle spasms [Unknown]
  - Constipation [Not Recovered/Not Resolved]
  - Insomnia [Unknown]
  - Dysgeusia [Unknown]
  - Nausea [Unknown]
  - Abdominal discomfort [Unknown]
  - Vomiting [Unknown]
  - Fatigue [Unknown]
